FAERS Safety Report 8291173-1 (Version None)
Quarter: 2012Q2

REPORT INFORMATION
  Report Type: 
  Country: None (occurrence: None)
  Receive Date: 20120417
  Receipt Date: 20120412
  Transmission Date: 20120825
  Serious: Yes (Hospitalization, Disabling)
  Sender: FDA-Public Use
  Company Number: US-MERCK-1201USA02545

PATIENT
  Age: 55 Year
  Sex: Female

DRUGS (6)
  1. FOSAMAX [Suspect]
     Indication: OSTEOPOROSIS
     Route: 048
     Dates: start: 20010501, end: 20080601
  2. VITAMIN D (UNSPECIFIED) [Concomitant]
     Route: 048
     Dates: start: 19990101
  3. FLONASE [Concomitant]
     Route: 055
     Dates: start: 20020601
  4. FOSAMAX [Suspect]
     Route: 048
     Dates: start: 20080701, end: 20100201
  5. TETRACYCLINE [Concomitant]
     Route: 065
     Dates: start: 19800101
  6. FOSAMAX [Suspect]
     Route: 048
     Dates: start: 19991101, end: 20010401

REACTIONS (6)
  - FRACTURE DELAYED UNION [None]
  - LOW TURNOVER OSTEOPATHY [None]
  - ADVERSE EVENT [None]
  - FEMUR FRACTURE [None]
  - BLOOD CALCIUM DECREASED [None]
  - GASTROOESOPHAGEAL REFLUX DISEASE [None]
